FAERS Safety Report 18254202 (Version 1)
Quarter: 2020Q3

REPORT INFORMATION
  Report Type: Spontaneous
  Country: US (occurrence: US)
  Receive Date: 20200910
  Receipt Date: 20200910
  Transmission Date: 20201103
  Serious: No
  Sender: FDA-Public Use
  Company Number: US-PFIZER INC-2020349999

PATIENT
  Age: 65 Year
  Sex: Female

DRUGS (1)
  1. IBRANCE [Suspect]
     Active Substance: PALBOCICLIB
     Indication: BREAST CANCER FEMALE
     Dosage: 100 MG, CYCLIC (100MG QD (ONCE A DAY) X 21 DAYS Q 28 DAYS)
     Dates: start: 20191225

REACTIONS (3)
  - Myalgia [Unknown]
  - Arthralgia [Unknown]
  - Pruritus [Unknown]
